FAERS Safety Report 18480932 (Version 1)
Quarter: 2020Q4

REPORT INFORMATION
  Report Type: Spontaneous
  Country: DE (occurrence: DE)
  Receive Date: 20201109
  Receipt Date: 20201109
  Transmission Date: 20210114
  Serious: Yes (Hospitalization)
  Sender: FDA-Public Use
  Company Number: DE-ALLERGAN-2043284US

PATIENT
  Sex: Female
  Weight: 75 kg

DRUGS (7)
  1. CANDESARTAN. [Concomitant]
     Active Substance: CANDESARTAN
     Dosage: 16 MG, 1-0-0-0
     Route: 048
  2. LEVOTHYROXINE- NATRIUM [Concomitant]
     Dosage: 75 ?G, 1-0-0-0
     Route: 048
  3. LIXIANA [Concomitant]
     Active Substance: EDOXABAN TOSYLATE
     Dosage: NK MG, 1-0-0-0
     Route: 048
  4. TORASEMID [Concomitant]
     Active Substance: TORSEMIDE
     Dosage: 10 MG, 2-0-0-0
     Route: 048
  5. MESALAZINE UNK [Suspect]
     Active Substance: MESALAMINE
     Indication: PRODUCT USED FOR UNKNOWN INDICATION
     Dosage: 500 MG, 1-0-0-0
     Route: 048
  6. BISOPROLOL [Concomitant]
     Active Substance: BISOPROLOL
     Dosage: 5 MG, 1-0-1-0
     Route: 048
  7. ATORVASTATIN [Concomitant]
     Active Substance: ATORVASTATIN
     Dosage: 40 MG, 0-0-1-0
     Route: 048

REACTIONS (3)
  - Fatigue [Unknown]
  - Condition aggravated [Unknown]
  - General physical health deterioration [Unknown]
